FAERS Safety Report 9381913 (Version 1)
Quarter: 2013Q3

REPORT INFORMATION
  Report Type: Spontaneous
  Country: AU (occurrence: AU)
  Receive Date: 20130703
  Receipt Date: 20130703
  Transmission Date: 20140515
  Serious: Yes (Death)
  Sender: FDA-Public Use
  Company Number: AU-B.I. PHARMACEUTICALS,INC./RIDGEFIELD-2013-AU-00743AU

PATIENT
  Sex: Female

DRUGS (3)
  1. PRADAXA [Suspect]
     Indication: CEREBROVASCULAR ACCIDENT PROPHYLAXIS
     Dosage: 220 MG
     Dates: start: 20110824, end: 201306
  2. PRADAXA [Suspect]
     Indication: ATRIAL FIBRILLATION
  3. PAIN RELIEF [Concomitant]
     Indication: PAIN

REACTIONS (3)
  - Coma [Fatal]
  - Dementia [Fatal]
  - Pain [Fatal]
